FAERS Safety Report 5333339-6 (Version None)
Quarter: 2007Q2

REPORT INFORMATION
  Report Type: 
  Country: None (occurrence: None)
  Receive Date: 20070524
  Receipt Date: 20070516
  Transmission Date: 20071010
  Serious: Yes (Hospitalization)
  Sender: FDA-Public Use
  Company Number: BR-ELI_LILLY_AND_COMPANY-BR200705004514

PATIENT
  Age: 84 Year
  Sex: Female

DRUGS (7)
  1. FORTEO [Suspect]
     Indication: OSTEOPOROSIS
     Dosage: 20 UG, UNKNOWN
     Route: 058
     Dates: start: 20060501
  2. ENALAPRIL [Concomitant]
     Indication: CARDIOVASCULAR DISORDER
     Dosage: 10 MG, UNKNOWN
     Route: 065
  3. ASPIRINE PROTECT [Concomitant]
     Indication: CARDIOVASCULAR DISORDER
     Dosage: UNK, UNKNOWN
     Route: 065
  4. OSCAL D [Concomitant]
     Indication: OSTEOPOROSIS
     Dosage: UNK, UNKNOWN
     Route: 065
  5. DIGOXIN [Concomitant]
     Indication: CARDIOVASCULAR DISORDER
     Dosage: 0.25 MG, UNKNOWN
     Route: 065
  6. GINKO BILOBA [Concomitant]
     Indication: LABYRINTHITIS
     Dosage: UNK, UNKNOWN
     Route: 065
  7. PARACETAMOL [Concomitant]
     Indication: PAIN
     Dosage: UNK, UNKNOWN
     Route: 065

REACTIONS (2)
  - PNEUMONIA [None]
  - PULMONARY OEDEMA [None]
